FAERS Safety Report 7251287-1 (Version None)
Quarter: 2011Q1

REPORT INFORMATION
  Report Type: 
  Country: None (occurrence: None)
  Receive Date: 20110119
  Receipt Date: 20110105
  Transmission Date: 20110831
  Serious: Yes (Other)
  Sender: FDA-Public Use
  Company Number: US-2011-10004

PATIENT
  Age: 45 Year
  Sex: Female

DRUGS (2)
  1. SAMSCA [Suspect]
     Indication: HYPONATRAEMIA
     Dosage: 30 MG MILLIGRAM(S), DAILY DOSE, ORAL ; 30 MG MILLIGRAM(S), QOD, ORAL
     Route: 048
     Dates: start: 20110103
  2. SAMSCA [Suspect]
     Indication: HYPONATRAEMIA
     Dosage: 30 MG MILLIGRAM(S), DAILY DOSE, ORAL ; 30 MG MILLIGRAM(S), QOD, ORAL
     Route: 048
     Dates: start: 20101222, end: 20110102

REACTIONS (6)
  - TREMOR [None]
  - LETHARGY [None]
  - INCREASED APPETITE [None]
  - DYSKINESIA [None]
  - CHEST DISCOMFORT [None]
  - THIRST [None]
